FAERS Safety Report 9868350 (Version 2)
Quarter: 2014Q1

REPORT INFORMATION
  Report Type: Spontaneous
  Country: US (occurrence: US)
  Receive Date: 20140204
  Receipt Date: 20140204
  Transmission Date: 20141002
  Serious: Yes (Hospitalization)
  Sender: FDA-Public Use
  Company Number: US-B.I. PHARMACEUTICALS,INC./RIDGEFIELD-2013-BI-30865BP

PATIENT
  Sex: Male
  Weight: 77.11 kg

DRUGS (9)
  1. PRADAXA [Suspect]
     Indication: ATRIAL FIBRILLATION
     Dates: start: 20110723, end: 20120607
  2. LISINOPRIL [Concomitant]
  3. COLCYS [Concomitant]
  4. AMIODARONE [Concomitant]
  5. HYDROCHLOROTHIAZIDE [Concomitant]
  6. METOPROLOL TARTRATE [Concomitant]
  7. PREDNISONE [Concomitant]
  8. SIMVASTATIN [Concomitant]
  9. ASPIRIN [Concomitant]

REACTIONS (3)
  - Cerebrovascular accident [Unknown]
  - Muscle haemorrhage [Unknown]
  - Rectal haemorrhage [Unknown]
